FAERS Safety Report 25756299 (Version 1)
Quarter: 2025Q3

REPORT INFORMATION
  Report Type: Spontaneous
  Country: US (occurrence: US)
  Receive Date: 20250903
  Receipt Date: 20250903
  Transmission Date: 20251020
  Serious: Yes (Other)
  Sender: AMGEN
  Company Number: US-AMGEN-USASP2025171412

PATIENT
  Age: 49 Year
  Sex: Female

DRUGS (2)
  1. BEVACIZUMAB [Suspect]
     Active Substance: BEVACIZUMAB
     Indication: Meningioma
     Dosage: 15 MILLIGRAM/KILOGRAM, Q3WK
     Route: 065
     Dates: start: 2021, end: 2021
  2. LANREOTIDE [Concomitant]
     Active Substance: LANREOTIDE
     Dosage: 120 MILLIGRAM, QMO
     Dates: start: 2020

REACTIONS (3)
  - Meningioma [Unknown]
  - Wound dehiscence [Unknown]
  - Off label use [Unknown]

NARRATIVE: CASE EVENT DATE: 20210101
